FAERS Safety Report 9116793 (Version 1)
Quarter: 2013Q1

REPORT INFORMATION
  Report Type: Spontaneous
  Country: US (occurrence: US)
  Receive Date: 20130225
  Receipt Date: 20130225
  Transmission Date: 20140127
  Serious: Yes (Other)
  Sender: FDA-Public Use
  Company Number: US-COVIDIEN/TYCO HEALTHCARE/MALLINCKRODT-T201300853

PATIENT
  Age: 20 Day
  Sex: Male

DRUGS (6)
  1. METHADOSE [Suspect]
     Indication: DRUG DEPENDENCE
     Dosage: 7.8 MG, SINGLE
     Route: 051
  2. METHADOSE [Suspect]
     Dosage: 39 MCG Q 6 HOURS
     Route: 051
  3. FENTANYL [Concomitant]
     Indication: ANALGESIC THERAPY
     Dosage: 19 MCG/KG/H
     Route: 042
  4. FENTANYL [Concomitant]
     Indication: SEDATION
     Dosage: 10 MCG/KG/H
     Route: 042
  5. MORPHINE [Concomitant]
     Indication: ANALGESIC THERAPY
     Dosage: 0.1 MG/KG, INTERMITTANT
     Route: 042
  6. MORPHINE [Concomitant]
     Indication: SEDATION

REACTIONS (5)
  - Drug dispensing error [Recovered/Resolved]
  - Accidental overdose [Recovered/Resolved]
  - Respiratory depression [Recovered/Resolved]
  - Clonus [Recovered/Resolved]
  - Haemodynamic instability [Recovered/Resolved]
